FAERS Safety Report 8310056-1 (Version None)
Quarter: 2012Q2

REPORT INFORMATION
  Report Type: 
  Country: None (occurrence: None)
  Receive Date: 20120425
  Receipt Date: 20120411
  Transmission Date: 20120825
  Serious: Yes (Other)
  Sender: FDA-Public Use
  Company Number: JP-MYLANLABS-2012S1007729

PATIENT
  Age: 80 Year
  Sex: Female

DRUGS (5)
  1. ATORVASTATIN [Interacting]
     Dosage: 10 MG/D
     Route: 065
  2. ALFACALCIDOL [Concomitant]
     Dosage: 0.5 MICROG/D
     Route: 065
  3. BENIDIPINE [Interacting]
     Dosage: 8 MG/D
     Route: 065
     Dates: end: 20100901
  4. DONEPEZIL HCL [Suspect]
     Indication: DEMENTIA ALZHEIMER'S TYPE
     Dosage: 5 MG/D
     Route: 065
  5. RISEDRONIC ACID [Concomitant]
     Route: 065

REACTIONS (2)
  - ELECTROCARDIOGRAM QT PROLONGED [None]
  - DRUG INTERACTION [None]
